FAERS Safety Report 7204588-7 (Version None)
Quarter: 2010Q4

REPORT INFORMATION
  Report Type: 
  Country: None (occurrence: None)
  Receive Date: 20101230
  Receipt Date: 20101223
  Transmission Date: 20110411
  Serious: Yes (Hospitalization, Other)
  Sender: FDA-Public Use
  Company Number: GR-MPIJNJ-2010-06054

PATIENT

DRUGS (3)
  1. VELCADE [Suspect]
     Indication: NON-SMALL CELL LUNG CANCER
     Dosage: 1.54 MG, UNK
     Route: 042
     Dates: start: 20101101, end: 20101101
  2. GEMCITABINE HCL [Suspect]
     Indication: NON-SMALL CELL LUNG CANCER
     Dosage: 1550 MG, UNK
     Route: 042
     Dates: start: 20101123, end: 20101123
  3. CISPLATIN [Suspect]
     Indication: NON-SMALL CELL LUNG CANCER
     Dosage: 107 MG, UNK
     Route: 042
     Dates: start: 20101101, end: 20101104

REACTIONS (4)
  - NEUTROPENIA [None]
  - OEDEMA [None]
  - OPTIC ISCHAEMIC NEUROPATHY [None]
  - PAIN IN EXTREMITY [None]
